FAERS Safety Report 19909719 (Version 1)
Quarter: 2021Q4

REPORT INFORMATION
  Report Type: Spontaneous
  Country: DE (occurrence: DE)
  Receive Date: 20211002
  Receipt Date: 20211002
  Transmission Date: 20220303
  Serious: Yes (Life-Threatening, Hospitalization)
  Sender: FDA-Public Use
  Company Number: DE-DCGMA-21188823

PATIENT
  Age: 39 Year
  Sex: Male
  Weight: 49 kg

DRUGS (3)
  1. PEMETREXED [Suspect]
     Active Substance: PEMETREXED
     Indication: Non-small cell lung cancer
     Route: 042
     Dates: start: 20210123
  2. PEMBROLIZUMAB [Suspect]
     Active Substance: PEMBROLIZUMAB
     Indication: Non-small cell lung cancer
     Route: 042
     Dates: start: 20210123
  3. CARBOPLATIN [Concomitant]
     Active Substance: CARBOPLATIN
     Indication: Non-small cell lung cancer
     Route: 042

REACTIONS (7)
  - Ascites [Unknown]
  - Oedema [Unknown]
  - Lung infiltration [Unknown]
  - Pleural effusion [Unknown]
  - Vomiting [Unknown]
  - Respiratory failure [Unknown]
  - Nausea [Unknown]

NARRATIVE: CASE EVENT DATE: 20210126
